FAERS Safety Report 6491989-8 (Version None)
Quarter: 2009Q4

REPORT INFORMATION
  Report Type: 
  Country: None (occurrence: None)
  Receive Date: 20091208
  Receipt Date: 20091122
  Transmission Date: 20100525
  Serious: Yes (Disabling)
  Sender: FDA-Public Use
  Company Number: GB-DEXPHARM-20092041

PATIENT
  Sex: Female

DRUGS (2)
  1. LOSEC (BATCH: GE8552) [Suspect]
     Dosage: 20 MG MILLIGRAM(S) 1 IN 1 DAY ORAL
     Route: 048
     Dates: start: 20060908, end: 20061113
  2. CARBIMAZOLE [Concomitant]

REACTIONS (3)
  - MALAISE [None]
  - OROPHARYNGEAL PAIN [None]
  - PRURITUS [None]
